FAERS Safety Report 5318905-6 (Version None)
Quarter: 2007Q1

REPORT INFORMATION
  Report Type: 
  Country: None (occurrence: None)
  Receive Date: 20070202
  Receipt Date: 20061025
  Transmission Date: 20070707
  Serious: Yes (Hospitalization)
  Sender: FDA-Public Use
  Company Number: 258040

PATIENT
  Age: 59 Year
  Sex: Female
  Weight: 103 kg

DRUGS (3)
  1. NOVOLOG [Suspect]
     Indication: BLOOD GLUCOSE INCREASED
     Dosage: SLIDING SCALE, SUBCUTANEOUS
     Route: 058
     Dates: start: 20060901, end: 20061007
  2. NOVOLOG [Suspect]
     Indication: BLOOD GLUCOSE INCREASED
     Dosage: SLIDING SCALE, SUBCUTANEOUS
     Route: 058
     Dates: start: 20061024
  3. SOLU-MEDROL [Concomitant]

REACTIONS (2)
  - BLOOD GLUCOSE INCREASED [None]
  - CONDITION AGGRAVATED [None]
